FAERS Safety Report 6400243-1 (Version None)
Quarter: 2009Q4

REPORT INFORMATION
  Report Type: 
  Country: None (occurrence: None)
  Receive Date: 20091014
  Receipt Date: 20091005
  Transmission Date: 20100525
  Serious: Yes (Death)
  Sender: FDA-Public Use
  Company Number: JP-PFIZER INC-2009270627

PATIENT
  Age: 50 Year

DRUGS (2)
  1. GABAPEN [Suspect]
     Indication: CANCER PAIN
     Dosage: 200 MG, 1X/DAY
     Route: 048
     Dates: start: 20090821, end: 20090903
  2. GEMZAR [Suspect]
     Indication: RENAL CANCER STAGE IV
     Dosage: UNK
     Route: 042
     Dates: start: 20090101, end: 20090903

REACTIONS (3)
  - DEATH [None]
  - ERYTHEMA [None]
  - PRURITUS GENERALISED [None]
